FAERS Safety Report 15301784 (Version 1)
Quarter: 2018Q3

REPORT INFORMATION
  Report Type: Spontaneous
  Country: US (occurrence: US)
  Receive Date: 20180821
  Receipt Date: 20180821
  Transmission Date: 20181010
  Serious: No
  Sender: FDA-Public Use
  Company Number: US-MANNKIND CORPORATION-2017MK000136

PATIENT
  Age: 56 Year
  Sex: Female
  Weight: 104.42 kg

DRUGS (10)
  1. LISINOPRIL. [Concomitant]
     Active Substance: LISINOPRIL
     Indication: HYPERTENSION
     Route: 048
  2. AFREZZA [Suspect]
     Active Substance: INSULIN HUMAN
     Indication: TYPE 2 DIABETES MELLITUS
     Dates: start: 20151022, end: 201607
  3. AFREZZA [Suspect]
     Active Substance: INSULIN HUMAN
     Dates: start: 201607, end: 201610
  4. LEVOTHYROXINE. [Concomitant]
     Active Substance: LEVOTHYROXINE
     Indication: THYROID DISORDER
     Route: 048
     Dates: start: 2003
  5. ATENOLOL/HYDROCHLOROTHIAZIDE [Concomitant]
     Active Substance: ATENOLOL\HYDROCHLOROTHIAZIDE
     Indication: HEART RATE ABNORMAL
     Dosage: 25?12.5 MILLIGRAM
     Route: 048
     Dates: start: 2003
  6. REPATHA [Concomitant]
     Active Substance: EVOLOCUMAB
     Indication: BLOOD CHOLESTEROL
     Dates: start: 201606
  7. VITAMIN D [Concomitant]
     Active Substance: CHOLECALCIFEROL
     Indication: VITAMIN D DEFICIENCY
     Route: 048
     Dates: start: 2014
  8. AFREZZA [Suspect]
     Active Substance: INSULIN HUMAN
     Dates: start: 201704
  9. AFREZZA [Suspect]
     Active Substance: INSULIN HUMAN
     Dates: start: 201610, end: 201704
  10. JARDIANCE [Concomitant]
     Active Substance: EMPAGLIFLOZIN
     Indication: DIABETES MELLITUS
     Route: 048
     Dates: start: 2014

REACTIONS (8)
  - Skin burning sensation [Not Recovered/Not Resolved]
  - Cough [Recovering/Resolving]
  - Musculoskeletal pain [Unknown]
  - Nausea [Unknown]
  - Vision blurred [Not Recovered/Not Resolved]
  - Fatigue [Unknown]
  - Hypoacusis [Unknown]
  - Dizziness [Unknown]

NARRATIVE: CASE EVENT DATE: 201510
